FAERS Safety Report 14092652 (Version 1)
Quarter: 2017Q4

REPORT INFORMATION
  Report Type: Spontaneous
  Country: CH (occurrence: CH)
  Receive Date: 20171016
  Receipt Date: 20171016
  Transmission Date: 20180321
  Serious: Yes (Other)
  Sender: FDA-Public Use
  Company Number: CH-TEVA-813763ISR

PATIENT
  Age: 79 Year
  Sex: Male
  Weight: 77 kg

DRUGS (10)
  1. RAMIPRIL HCT [Suspect]
     Active Substance: HYDROCHLOROTHIAZIDE\RAMIPRIL
     Indication: HYPERTENSION
     Dosage: 1 X 5 MG TABLET AMLODIPINE/25 MG HCT DAILY
     Route: 048
     Dates: start: 20170819
  2. CANDESARTAN. [Suspect]
     Active Substance: CANDESARTAN
     Indication: HYPERTENSION
     Route: 048
     Dates: start: 20170819
  3. ATORVASTATIN MEPHA [Suspect]
     Active Substance: ATORVASTATIN
     Route: 048
     Dates: start: 20170819
  4. METRONIDAZOLE B BRAUN [Suspect]
     Active Substance: METRONIDAZOLE
     Indication: SURGERY
     Dosage: 1500 MILLIGRAM DAILY;
     Route: 042
     Dates: start: 20170817, end: 20170821
  5. AMLODIPIN PFIZER [Concomitant]
     Active Substance: AMLODIPINE BESYLATE
     Indication: HYPERTENSION
     Route: 048
     Dates: start: 20170819
  6. PERFALGAN 1G INFUSIONSLOESUNG [Concomitant]
     Indication: PROCEDURAL PAIN
     Route: 042
     Dates: start: 20170817, end: 20170820
  7. ROCEPHIN [Suspect]
     Active Substance: CEFTRIAXONE SODIUM
     Indication: SURGERY
     Route: 042
     Dates: start: 20170817, end: 20170821
  8. NOVALGIN [Suspect]
     Active Substance: METAMIZOLE SODIUM
     Indication: PROCEDURAL PAIN
     Route: 042
     Dates: start: 20170817, end: 20170820
  9. ALFUZOSIN AXAPHARM [Suspect]
     Active Substance: ALFUZOSIN
     Indication: BENIGN PROSTATIC HYPERPLASIA
     Route: 048
  10. CLEXANE [Concomitant]
     Active Substance: ENOXAPARIN SODIUM
     Indication: SURGERY
     Route: 058
     Dates: start: 20170817, end: 20170824

REACTIONS (4)
  - Hallucination, visual [Recovered/Resolved]
  - Vitreous floaters [None]
  - Anxiety [Recovered/Resolved]
  - Confusional state [Recovered/Resolved]

NARRATIVE: CASE EVENT DATE: 20170821
